FAERS Safety Report 6601225-7 (Version None)
Quarter: 2010Q1

REPORT INFORMATION
  Report Type: 
  Country: None (occurrence: None)
  Receive Date: 20100225
  Receipt Date: 20100219
  Transmission Date: 20100710
  Serious: Yes (Hospitalization)
  Sender: FDA-Public Use
  Company Number: US-BRISTOL-MYERS SQUIBB COMPANY-14984652

PATIENT
  Age: 6 Year
  Sex: Male
  Weight: 36 kg

DRUGS (6)
  1. SPRYCEL [Suspect]
     Indication: ACUTE LYMPHOCYTIC LEUKAEMIA
     Dosage: 48MG/M2 QD DAY 1 - 14
     Route: 048
     Dates: start: 20091224, end: 20100119
  2. ETOPOSIDE [Suspect]
     Indication: ACUTE LYMPHOCYTIC LEUKAEMIA
     Dosage: 100MG/M2
     Route: 042
     Dates: start: 20091224, end: 20100118
  3. IFOSFAMIDE [Suspect]
     Indication: ACUTE LYMPHOCYTIC LEUKAEMIA
     Route: 042
     Dates: start: 20091224, end: 20100114
  4. HYDROCORTISONE [Suspect]
     Indication: ACUTE LYMPHOCYTIC LEUKAEMIA
     Route: 037
     Dates: start: 20091224, end: 20100114
  5. METHOTREXATE [Suspect]
     Indication: ACUTE LYMPHOCYTIC LEUKAEMIA
     Route: 037
     Dates: start: 20091224, end: 20100114
  6. CYTARABINE [Suspect]
     Indication: ACUTE LYMPHOCYTIC LEUKAEMIA
     Route: 037
     Dates: start: 20091224, end: 20100114

REACTIONS (2)
  - AGITATION [None]
  - CONFUSIONAL STATE [None]
